FAERS Safety Report 7895552 (Version 7)
Quarter: 2013Q4

REPORT INFORMATION
  Report Type: Report from Study
  Country: JP (occurrence: JP)
  Receive Date: 20110412
  Receipt Date: 20131121
  Transmission Date: 20140711
  Serious: Yes (Other)
  Sender: FDA-Public Use
  Company Number: PHHY2011JP27386

PATIENT
  Age: 66 Year
  Sex: Male

DRUGS (14)
  1. AMN107 [Suspect]
     Indication: CHRONIC MYELOID LEUKAEMIA
     Dosage: 800 MG, DAILY
     Route: 048
     Dates: start: 20100322, end: 20120617
  2. AMN107 [Suspect]
     Dosage: 600 MG, DAILY
     Route: 048
     Dates: start: 20120618, end: 20120819
  3. AMN107 [Suspect]
     Dosage: 400 MG, DAILY
     Route: 048
     Dates: start: 20120820, end: 20120923
  4. AMN107 [Suspect]
     Dosage: 800 MG, DAILY
     Route: 048
     Dates: start: 20120924
  5. SELBEX [Suspect]
     Dosage: 100 MG, UNK
     Route: 048
     Dates: start: 20080215
  6. ZANTAC [Suspect]
     Dosage: 300 MG, UNK
     Route: 048
     Dates: start: 20100405
  7. NU-LOTAN [Suspect]
     Dosage: 50 MG, UNK
     Route: 048
     Dates: start: 20100621
  8. BAYASPIRIN [Suspect]
     Dosage: 100 MG, UNK
     Dates: start: 20130123
  9. HARNAL [Suspect]
     Dosage: UNK UKN, UNK
     Route: 048
     Dates: start: 20101029
  10. AMLODIN [Suspect]
     Dosage: 5 MG, UNK
     Route: 048
     Dates: start: 20130123
  11. PLETAAL [Suspect]
     Route: 048
     Dates: start: 20130123, end: 20130124
  12. ZYLORIC [Concomitant]
     Dosage: 100 MG, UNK
     Route: 048
     Dates: start: 20080215, end: 20120927
  13. BIOFERMIN [Concomitant]
     Dosage: 3 G, UNK
     Route: 048
     Dates: start: 20091204
  14. PLAVIX [Concomitant]

REACTIONS (4)
  - Liver disorder [Not Recovered/Not Resolved]
  - Spinal column stenosis [Not Recovered/Not Resolved]
  - Hypoaesthesia [Unknown]
  - Palpitations [Unknown]
